FAERS Safety Report 8208196-0 (Version None)
Quarter: 2012Q1

REPORT INFORMATION
  Report Type: 
  Country: None (occurrence: None)
  Receive Date: 20120314
  Receipt Date: 20120308
  Transmission Date: 20120608
  Serious: Yes (Death, Other)
  Sender: FDA-Public Use
  Company Number: PHHY2012PH021102

PATIENT
  Sex: Male

DRUGS (1)
  1. GLEEVEC [Suspect]
     Indication: CHRONIC MYELOID LEUKAEMIA
     Dosage: 400 MG, DAILY
     Route: 048
     Dates: start: 20060503

REACTIONS (5)
  - PAIN [None]
  - NEOPLASM MALIGNANT [None]
  - PNEUMONIA [None]
  - CHRONIC MYELOID LEUKAEMIA [None]
  - COLORECTAL CANCER [None]
